FAERS Safety Report 24095082 (Version 3)
Quarter: 2024Q4

REPORT INFORMATION
  Report Type: Report from Study
  Country: US (occurrence: US)
  Receive Date: 20240716
  Receipt Date: 20241001
  Transmission Date: 20250114
  Serious: No
  Sender: ROCHE
  Company Number: US-ROCHE-10000026217

PATIENT
  Age: 55 Year
  Sex: Female
  Weight: 54.43 kg

DRUGS (8)
  1. OCREVUS [Suspect]
     Active Substance: OCRELIZUMAB
     Indication: Secondary progressive multiple sclerosis
     Dosage: DOSAGE INFORMATION: LOADING DOSE 300 MG AT DAY DAY1 AND DAY 15?DOSE STRENGTH: 300 MG/10 ML?NEXT INFU
     Route: 065
     Dates: start: 20240607
  2. BACLOFEN [Concomitant]
     Active Substance: BACLOFEN
  3. VESICARE [Concomitant]
     Active Substance: SOLIFENACIN SUCCINATE
  4. DALFAMPRIDINE [Concomitant]
     Active Substance: DALFAMPRIDINE
  5. CELEXA [Concomitant]
     Active Substance: CITALOPRAM HYDROBROMIDE
  6. MYRBETRIQ [Concomitant]
     Active Substance: MIRABEGRON
  7. ZOLPIDEM [Concomitant]
     Active Substance: ZOLPIDEM TARTRATE
  8. VITAMIN D3 [Concomitant]
     Active Substance: CHOLECALCIFEROL

REACTIONS (4)
  - Oral herpes [Recovered/Resolved]
  - Oropharyngeal pain [Not Recovered/Not Resolved]
  - Cough [Not Recovered/Not Resolved]
  - Fungal infection [Not Recovered/Not Resolved]

NARRATIVE: CASE EVENT DATE: 20240614
